FAERS Safety Report 15596236 (Version 1)
Quarter: 2018Q4

REPORT INFORMATION
  Report Type: Spontaneous
  Country: TR (occurrence: TR)
  Receive Date: 20181107
  Receipt Date: 20181107
  Transmission Date: 20190205
  Serious: Yes (Hospitalization)
  Sender: FDA-Public Use
  Company Number: PHHY2018TR147831

PATIENT
  Age: 45 Year
  Sex: Female

DRUGS (1)
  1. ALLOPURINOL. [Suspect]
     Active Substance: ALLOPURINOL
     Indication: PRODUCT USED FOR UNKNOWN INDICATION
     Dosage: 300 MG, QD
     Route: 065

REACTIONS (18)
  - Mucosal erosion [Recovering/Resolving]
  - Mouth ulceration [Recovering/Resolving]
  - Skin fissures [Recovering/Resolving]
  - Hypotension [Recovering/Resolving]
  - Rash maculo-papular [Recovering/Resolving]
  - Tachycardia [Recovering/Resolving]
  - Face oedema [Recovering/Resolving]
  - Pyrexia [Recovering/Resolving]
  - Thrombocytopenia [Recovering/Resolving]
  - Renal function test abnormal [Recovering/Resolving]
  - Tachypnoea [Recovering/Resolving]
  - Secretion discharge [Recovering/Resolving]
  - Inflammatory marker increased [Recovering/Resolving]
  - Rash generalised [Recovered/Resolved]
  - Eosinophilia [Recovering/Resolving]
  - Hepatic enzyme increased [Recovering/Resolving]
  - Drug reaction with eosinophilia and systemic symptoms [Recovering/Resolving]
  - General physical health deterioration [Recovering/Resolving]
